FAERS Safety Report 7462637-5 (Version None)
Quarter: 2011Q2

REPORT INFORMATION
  Report Type: 
  Country: None (occurrence: None)
  Receive Date: 20110506
  Receipt Date: 20110427
  Transmission Date: 20111010
  Serious: Yes (Other)
  Sender: FDA-Public Use
  Company Number: PHHY2011DK36521

PATIENT
  Age: 24 Year
  Sex: Male

DRUGS (2)
  1. RITALIN [Suspect]
     Dosage: 30 MG, QD
  2. RITALIN [Suspect]
     Dosage: UNK

REACTIONS (2)
  - STRESS [None]
  - INTENTIONAL DRUG MISUSE [None]
